FAERS Safety Report 15135733 (Version 1)
Quarter: 2018Q3

REPORT INFORMATION
  Report Type: Report from Study
  Country: HK (occurrence: HK)
  Receive Date: 20180712
  Receipt Date: 20180712
  Transmission Date: 20181010
  Serious: Yes (Hospitalization)
  Sender: FDA-Public Use
  Company Number: PHHO2010HK05632

PATIENT
  Age: 58 Year
  Sex: Female
  Weight: 56 kg

DRUGS (9)
  1. COMPARATOR PACLITAXEL [Suspect]
     Active Substance: PACLITAXEL
     Indication: BREAST CANCER METASTATIC
     Dosage: 100 MG
     Route: 041
     Dates: start: 20091211, end: 20100319
  2. COMPARATOR PACLITAXEL [Suspect]
     Active Substance: PACLITAXEL
     Dosage: 100 MG, UNK
     Route: 042
     Dates: start: 20100430, end: 20110207
  3. COMPARATOR TRASTUZUMAB [Suspect]
     Active Substance: TRASTUZUMAB
     Dosage: 60 MG/M2, UNK
     Route: 042
     Dates: start: 20110304, end: 20110429
  4. AFINITOR [Suspect]
     Active Substance: EVEROLIMUS
     Dosage: UNK
     Route: 048
     Dates: start: 20110304
  5. COMPARATOR TRASTUZUMAB [Suspect]
     Active Substance: TRASTUZUMAB
     Dosage: 2 MG/KG, UNK
     Route: 042
     Dates: start: 20100409
  6. AFINITOR [Suspect]
     Active Substance: EVEROLIMUS
     Indication: BREAST CANCER METASTATIC
     Dosage: UNK
     Route: 048
     Dates: start: 20091211, end: 20100409
  7. AFINITOR [Suspect]
     Active Substance: EVEROLIMUS
     Dosage: UNK
     Route: 048
     Dates: start: 20100430, end: 20110206
  8. COMPARATOR TRASTUZUMAB [Suspect]
     Active Substance: TRASTUZUMAB
     Indication: BREAST CANCER METASTATIC
     Dosage: 112 MG
     Route: 041
     Dates: start: 20091211, end: 20100312
  9. PERINDOPRIL [Concomitant]
     Active Substance: PERINDOPRIL
     Dosage: 2 MG, QD
     Dates: start: 20101115, end: 20110208

REACTIONS (3)
  - Hepatic steatosis [Recovered/Resolved with Sequelae]
  - Liver function test abnormal [Recovered/Resolved]
  - Hepatitis A [Recovered/Resolved with Sequelae]

NARRATIVE: CASE EVENT DATE: 20100401
